FAERS Safety Report 4277169-5 (Version None)
Quarter: 2004Q1

REPORT INFORMATION
  Report Type: 
  Country: None (occurrence: None)
  Receive Date: 20040120
  Receipt Date: 20040108
  Transmission Date: 20041129
  Serious: Yes (Death, Hospitalization)
  Sender: FDA-Public Use
  Company Number: JP-JNJFOC-20031101785

PATIENT
  Age: 55 Year
  Sex: Male

DRUGS (15)
  1. FENTANYL [Suspect]
     Indication: CANCER PAIN
     Dosage: 3.75 + 5 + 2.5 + 7.5 MG, 1 IN 3 DAY, TRNASDERMAL
     Route: 062
     Dates: start: 20031014, end: 20031016
  2. FENTANYL [Suspect]
     Indication: CANCER PAIN
     Dosage: 3.75 + 5 + 2.5 + 7.5 MG, 1 IN 3 DAY, TRNASDERMAL
     Route: 062
     Dates: start: 20031017, end: 20031019
  3. FENTANYL [Suspect]
     Indication: CANCER PAIN
     Dosage: 3.75 + 5 + 2.5 + 7.5 MG, 1 IN 3 DAY, TRNASDERMAL
     Route: 062
     Dates: start: 20031020, end: 20031106
  4. FENTANYL [Suspect]
     Indication: CANCER PAIN
     Dosage: 3.75 + 5 + 2.5 + 7.5 MG, 1 IN 3 DAY, TRNASDERMAL
     Route: 062
     Dates: start: 20031107, end: 20031107
  5. FLURBIPROFEN AXETIL (FLURBIPROFEN AXETIL) UNKNOWN [Suspect]
     Indication: CANCER PAIN
     Dosage: 50 + 75 MG, IN 1 DAY, INTRAVENOUS
     Route: 042
     Dates: start: 20031014, end: 20031028
  6. FLURBIPROFEN AXETIL (FLURBIPROFEN AXETIL) UNKNOWN [Suspect]
     Indication: CANCER PAIN
     Dosage: 50 + 75 MG, IN 1 DAY, INTRAVENOUS
     Route: 042
     Dates: start: 20031029, end: 20031105
  7. OMEPRAZOLE SODIUM (OMEPRAZOLE SODIUM) UNKNOWN [Suspect]
     Indication: PEPTIC ULCER
     Dosage: 40 MG,  IN 1 DAY, INTRAVENOUS
     Route: 042
     Dates: start: 20031029, end: 20031105
  8. MORPHINE HYDROCHLORIDE (MORPHINE HYDROCHLORIDE) [Concomitant]
  9. NAFTOPIDIL (NAFTOPIDIL) [Concomitant]
  10. MORPHINE HYDROCHLORIDE (MORPHINE HYDROCHLORIDE) [Concomitant]
  11. UNICALIQ N (UNICALIQ N) [Concomitant]
  12. PHYSIO 35 (ALL OTHER THERAPEUTIC PRODUCTS) [Concomitant]
  13. MULTIPLE VITAMIN FOR TOTAL PARENTERAL NUTRITION (MULTIVITAMINS) [Concomitant]
  14. ELEMENMIC (ELEMENMIC) [Concomitant]
  15. FUROSEMIDE [Concomitant]

REACTIONS (8)
  - ALANINE AMINOTRANSFERASE INCREASED [None]
  - ASPARTATE AMINOTRANSFERASE INCREASED [None]
  - CACHEXIA [None]
  - CANCER PAIN [None]
  - CONDITION AGGRAVATED [None]
  - GENERAL PHYSICAL HEALTH DETERIORATION [None]
  - HEPATIC ENZYME INCREASED [None]
  - HEPATOCELLULAR DAMAGE [None]
